FAERS Safety Report 9134673 (Version 1)
Quarter: 2013Q1

REPORT INFORMATION
  Report Type: Spontaneous
  Country: BR (occurrence: BR)
  Receive Date: 20130304
  Receipt Date: 20130304
  Transmission Date: 20140127
  Serious: Yes (Other)
  Sender: FDA-Public Use
  Company Number: PHHY2013BR020444

PATIENT
  Sex: Male
  Weight: 45 kg

DRUGS (2)
  1. RITALINA [Suspect]
     Indication: ATTENTION DEFICIT/HYPERACTIVITY DISORDER
     Dosage: 1 DF, QD (FROM MONDAY TO FRIDAY)
     Route: 048
  2. TRILEPTAL [Suspect]
     Indication: EPILEPSY
     Dosage: 1.5 DF, UNK
     Route: 048

REACTIONS (1)
  - Tendon disorder [Not Recovered/Not Resolved]
